FAERS Safety Report 21921621 (Version 1)
Quarter: 2023Q1

REPORT INFORMATION
  Report Type: Spontaneous
  Country: None (occurrence: US)
  Receive Date: 20230127
  Receipt Date: 20230127
  Transmission Date: 20230418
  Serious: No
  Sender: FDA-Public Use
  Company Number: US-Amphastar Pharmaceuticals, Inc.-2137199

PATIENT
  Age: 88 Year
  Sex: Male
  Weight: 65.455 kg

DRUGS (5)
  1. GLUCAGON [Suspect]
     Active Substance: GLUCAGON
     Indication: Blood glucose decreased
  2. GLUCAGON [Suspect]
     Active Substance: GLUCAGON
     Indication: Type 2 diabetes mellitus
  3. INSULIN NOS [Concomitant]
     Active Substance: INSULIN NOS
  4. Prescribed heart medication (Unspecified) [Concomitant]
  5. DEXTROSE [Concomitant]
     Active Substance: DEXTROSE

REACTIONS (1)
  - Product dose omission issue [Recovered/Resolved]

NARRATIVE: CASE EVENT DATE: 20221116
